FAERS Safety Report 7428431-6 (Version None)
Quarter: 2011Q2

REPORT INFORMATION
  Report Type: 
  Country: None (occurrence: None)
  Receive Date: 20110421
  Receipt Date: 20110406
  Transmission Date: 20111010
  Serious: Yes (Other)
  Sender: FDA-Public Use
  Company Number: PHHY2011JP28777

PATIENT
  Age: 78 Year
  Sex: Female

DRUGS (2)
  1. TEGRETOL [Suspect]
     Indication: TRIGEMINAL NEURALGIA
     Route: 048
  2. LOXONIN [Concomitant]

REACTIONS (6)
  - INSOMNIA [None]
  - PERIPHERAL COLDNESS [None]
  - SUICIDAL IDEATION [None]
  - DECREASED APPETITE [None]
  - FATIGUE [None]
  - PRURITUS GENERALISED [None]
